FAERS Safety Report 5369087-6 (Version None)
Quarter: 2007Q2

REPORT INFORMATION
  Report Type: 
  Country: None (occurrence: None)
  Receive Date: 20070625
  Receipt Date: 20070125
  Transmission Date: 20071010
  Serious: No
  Sender: FDA-Public Use
  Company Number: US-ASTRAZENECA-2007UW01562

PATIENT
  Age: 69 Year
  Sex: Female
  Weight: 63.5 kg

DRUGS (4)
  1. CRESTOR [Suspect]
     Indication: BLOOD CHOLESTEROL INCREASED
     Route: 048
     Dates: start: 20061101, end: 20061201
  2. CRESTOR [Suspect]
     Route: 048
     Dates: start: 20061201
  3. BP MEDICATIONS [Concomitant]
     Indication: BLOOD PRESSURE
  4. HORMONE REPLACEMENT [Concomitant]

REACTIONS (1)
  - ABDOMINAL DISCOMFORT [None]
